FAERS Safety Report 23220158 (Version 5)
Quarter: 2025Q2

REPORT INFORMATION
  Report Type: Report from Study
  Country: CZ (occurrence: CZ)
  Receive Date: 20231123
  Receipt Date: 20250516
  Transmission Date: 20250717
  Serious: Yes (Other)
  Sender: AUROBINDO
  Company Number: CZ-TEVA-2023-CZ-2942829

PATIENT
  Age: 42 Year
  Sex: Female

DRUGS (16)
  1. GABAPENTIN [Suspect]
     Active Substance: GABAPENTIN
     Indication: Migraine without aura
     Route: 065
  2. LEVETIRACETAM [Suspect]
     Active Substance: LEVETIRACETAM
     Indication: Migraine
     Route: 065
  3. LEVETIRACETAM [Suspect]
     Active Substance: LEVETIRACETAM
     Indication: Migraine without aura
  4. LEVETIRACETAM [Suspect]
     Active Substance: LEVETIRACETAM
     Indication: Prophylaxis
  5. SUMATRIPTAN [Suspect]
     Active Substance: SUMATRIPTAN
     Indication: Migraine without aura
     Route: 065
  6. BOTOX [Suspect]
     Active Substance: ONABOTULINUMTOXINA
     Indication: Product used for unknown indication
     Route: 065
  7. TOPIRAMATE [Suspect]
     Active Substance: TOPIRAMATE
     Indication: Migraine without aura
     Route: 065
  8. VALPROIC ACID [Suspect]
     Active Substance: VALPROIC ACID
     Indication: Migraine
     Route: 065
  9. VALPROIC ACID [Suspect]
     Active Substance: VALPROIC ACID
     Indication: Migraine without aura
  10. INDOMETHACIN [Concomitant]
     Active Substance: INDOMETHACIN
     Indication: Headache
     Route: 065
  11. INDOMETHACIN [Concomitant]
     Active Substance: INDOMETHACIN
     Indication: Analgesic therapy
  12. RELPAX [Concomitant]
     Active Substance: ELETRIPTAN HYDROBROMIDE
     Indication: Migraine without aura
     Route: 065
  13. RELPAX [Concomitant]
     Active Substance: ELETRIPTAN HYDROBROMIDE
     Indication: Headache
  14. RELPAX [Concomitant]
     Active Substance: ELETRIPTAN HYDROBROMIDE
     Indication: Analgesic therapy
  15. SUMATRIPTAN [Concomitant]
     Active Substance: SUMATRIPTAN
     Indication: Analgesic therapy
     Route: 065
  16. SUMATRIPTAN [Concomitant]
     Active Substance: SUMATRIPTAN
     Indication: Headache

REACTIONS (8)
  - Medication overuse headache [Recovered/Resolved]
  - Migraine [Unknown]
  - Condition aggravated [Unknown]
  - Gastrointestinal disorder [Recovered/Resolved]
  - Drug intolerance [Recovered/Resolved]
  - Drug ineffective [Unknown]
  - Off label use [Unknown]
  - Drug ineffective for unapproved indication [Unknown]
